FAERS Safety Report 22260811 (Version 1)
Quarter: 2023Q2

REPORT INFORMATION
  Report Type: Spontaneous
  Country: QW (occurrence: None)
  Receive Date: 20230425
  Receipt Date: 20230425
  Transmission Date: 20230721
  Serious: Yes (Hospitalization)
  Sender: FDA-Public Use
  Company Number: None

PATIENT
  Age: 31 Year
  Sex: Female

DRUGS (4)
  1. XELODA [Suspect]
     Active Substance: CAPECITABINE
     Dosage: FREQUENCY : TWICE A DAY;?
     Route: 048
  2. NEURONTIN [Concomitant]
  3. OMEPRAZOLE [Concomitant]
  4. XANAX [Concomitant]
     Active Substance: ALPRAZOLAM

REACTIONS (1)
  - Pneumonia [None]

NARRATIVE: CASE EVENT DATE: 20230409
